FAERS Safety Report 7249495-9 (Version None)
Quarter: 2011Q1

REPORT INFORMATION
  Report Type: 
  Country: None (occurrence: None)
  Receive Date: 20110119
  Receipt Date: 20110111
  Transmission Date: 20110831
  Serious: Yes (Life-Threatening, Hospitalization, Other)
  Sender: FDA-Public Use
  Company Number: 111438

PATIENT
  Age: 27 Year
  Sex: Female

DRUGS (1)
  1. PROPRANOLOL HCL [Suspect]
     Indication: OVERDOSE
     Dosage: 7G BY MOUTH
     Route: 048

REACTIONS (8)
  - CIRCULATORY COLLAPSE [None]
  - INTENTIONAL OVERDOSE [None]
  - MYDRIASIS [None]
  - PUPILLARY REFLEX IMPAIRED [None]
  - GRAND MAL CONVULSION [None]
  - MEDICATION ERROR [None]
  - DRUG INEFFECTIVE [None]
  - ELECTROCARDIOGRAM QT PROLONGED [None]
